FAERS Safety Report 7074406-9 (Version None)
Quarter: 2010Q4

REPORT INFORMATION
  Report Type: 
  Country: None (occurrence: None)
  Receive Date: 20101029
  Receipt Date: 20101020
  Transmission Date: 20110411
  Serious: Yes (Disabling)
  Sender: FDA-Public Use
  Company Number: GXKR2010GB11883

PATIENT
  Age: 38 Year
  Sex: Male
  Weight: 87 kg

DRUGS (5)
  1. SIMVASTATIN (NGX) [Suspect]
     Indication: HYPERLIPIDAEMIA
     Dosage: 40 MG, QD
     Route: 048
     Dates: start: 20100922, end: 20100926
  2. SIMVASTATIN (NGX) [Suspect]
     Indication: PROPHYLAXIS
  3. CLOZAPINE [Concomitant]
     Indication: SCHIZOAFFECTIVE DISORDER
     Dosage: 600 MG, QD
     Route: 065
  4. FLUVOXAMINE MALEATE [Concomitant]
     Dosage: 25 MG, QD
     Route: 065
  5. VALPROATE SODIUM [Concomitant]
     Dosage: 400 MG, BID
     Route: 065

REACTIONS (2)
  - MENTAL IMPAIRMENT [None]
  - PARANOIA [None]
